FAERS Safety Report 6346899-3 (Version None)
Quarter: 2009Q3

REPORT INFORMATION
  Report Type: 
  Country: None (occurrence: None)
  Receive Date: 20090909
  Receipt Date: 20090909
  Transmission Date: 20100115
  Serious: Yes (Life-Threatening)
  Sender: FDA-Public Use
  Company Number: None

PATIENT
  Age: 57 Year
  Sex: Male
  Weight: 88.4514 kg

DRUGS (1)
  1. NIASPAN [Suspect]
     Indication: BLOOD CHOLESTEROL INCREASED
     Dosage: ONE TABLET AT BEDTIME BUCCAL
     Route: 002
     Dates: start: 20090906, end: 20090907

REACTIONS (7)
  - FLUSHING [None]
  - HOT FLUSH [None]
  - HYPERSENSITIVITY [None]
  - LOCAL SWELLING [None]
  - PRODUCT QUALITY ISSUE [None]
  - PRURITUS GENERALISED [None]
  - SWELLING FACE [None]
